FAERS Safety Report 24891913 (Version 3)
Quarter: 2025Q1

REPORT INFORMATION
  Report Type: Spontaneous
  Country: JP (occurrence: JP)
  Receive Date: 20250127
  Receipt Date: 20250328
  Transmission Date: 20250408
  Serious: Yes (Hospitalization, Other)
  Sender: ASTELLAS
  Company Number: JP-ASTELLAS-2025-AER-004040

PATIENT
  Age: 64 Year
  Sex: Female
  Weight: 42 kg

DRUGS (14)
  1. VYLOY [Suspect]
     Active Substance: ZOLBETUXIMAB-CLZB
     Indication: Gastric cancer
     Route: 042
     Dates: start: 20250107, end: 20250107
  2. CALONAL [Suspect]
     Active Substance: ACETAMINOPHEN
     Indication: Abdominal pain
     Route: 048
     Dates: start: 20250111, end: 20250114
  3. CALONAL [Suspect]
     Active Substance: ACETAMINOPHEN
     Route: 048
  4. CAPECITABINE [Suspect]
     Active Substance: CAPECITABINE
     Indication: Gastric cancer
     Route: 048
     Dates: start: 20250107, end: 20250114
  5. TRAMCET [Concomitant]
     Active Substance: ACETAMINOPHEN\TRAMADOL
     Indication: Product used for unknown indication
     Route: 048
  6. FAMOTIDINE [Concomitant]
     Active Substance: FAMOTIDINE
     Indication: Chronic gastritis
     Route: 048
     Dates: start: 20240606, end: 20250114
  7. MAGNESIUM OXIDE [Concomitant]
     Active Substance: MAGNESIUM OXIDE
     Indication: Constipation
     Route: 048
     Dates: start: 20240606, end: 20250114
  8. Toaraset tablet [Concomitant]
     Indication: Abdominal pain
     Dosage: TRAMADOL 150MG, ACETAMINOPHEN 1300MG
     Route: 048
     Dates: start: 20240606, end: 20250114
  9. OLANZAPINE [Concomitant]
     Active Substance: OLANZAPINE
     Indication: Nausea
     Route: 048
     Dates: start: 20250106, end: 20250111
  10. Palonosetron injection [Concomitant]
     Indication: Nausea
     Route: 042
     Dates: start: 20250107, end: 20250107
  11. Elplat injection? [Concomitant]
     Indication: Gastric cancer
     Route: 042
     Dates: start: 20250107, end: 20250107
  12. Aprepitant  Capsule [Concomitant]
     Indication: Nausea
     Route: 048
     Dates: start: 20250108, end: 20250109
  13. Aprepitant  Capsule [Concomitant]
     Route: 048
     Dates: start: 20250107, end: 20250107
  14. Heparinoid Lotion [Concomitant]
     Indication: Dry skin
     Route: 050
     Dates: start: 20250109

REACTIONS (1)
  - Stevens-Johnson syndrome [Recovered/Resolved]

NARRATIVE: CASE EVENT DATE: 20250114
